FAERS Safety Report 7290035-6 (Version None)
Quarter: 2011Q1

REPORT INFORMATION
  Report Type: 
  Country: None (occurrence: None)
  Receive Date: 20110214
  Receipt Date: 20110131
  Transmission Date: 20110831
  Serious: Yes (Hospitalization, Other)
  Sender: FDA-Public Use
  Company Number: US-CELGENEUS-163-21880-10120271

PATIENT
  Sex: Male
  Weight: 80.812 kg

DRUGS (28)
  1. DECADRON [Concomitant]
     Route: 065
  2. MS CONTIN [Concomitant]
     Route: 048
  3. SPIRIVA [Concomitant]
     Route: 065
  4. SENNA [Concomitant]
     Route: 065
  5. LIDODERM [Concomitant]
     Route: 065
  6. MIRALAX [Concomitant]
     Dosage: 3350 NF
     Route: 065
  7. NEXIUM [Concomitant]
     Route: 065
  8. PROSCAR [Concomitant]
     Route: 065
  9. FLOMAX [Concomitant]
     Route: 048
  10. COLACE [Concomitant]
     Route: 065
  11. DULCOLAX EC [Concomitant]
     Route: 065
  12. LIDOCAINE [Concomitant]
     Route: 062
  13. LIPITOR [Concomitant]
     Route: 065
  14. FERROUS SULFATE TAB [Concomitant]
     Route: 065
  15. MS CONTIN [Concomitant]
     Indication: PAIN MANAGEMENT
     Route: 048
  16. OMEPRAZOLE [Concomitant]
     Route: 065
  17. ALLOPURINOL [Concomitant]
     Route: 065
  18. SPIRIVA [Concomitant]
     Route: 065
  19. ALOE VESTA AER SKIN PRO [Concomitant]
     Route: 065
  20. LACTULOSE [Concomitant]
     Dosage: 10GM/15
     Route: 065
  21. DOCUSATE SOD [Concomitant]
     Route: 065
  22. MULTI-VITAMINS [Concomitant]
     Route: 048
  23. MORPHINE SULFATE [Concomitant]
     Route: 065
  24. REVLIMID [Suspect]
     Indication: MULTIPLE MYELOMA
     Route: 048
     Dates: start: 20101026
  25. MEGACE [Concomitant]
     Dosage: 40MG/ML
     Route: 048
  26. FINASTERIDE [Concomitant]
     Route: 065
  27. ATORVASTATIN [Concomitant]
     Route: 065
  28. VALIUM [Concomitant]
     Route: 065

REACTIONS (11)
  - PRESYNCOPE [None]
  - HYPERKALAEMIA [None]
  - CONSTIPATION [None]
  - DECREASED APPETITE [None]
  - FATIGUE [None]
  - HAEMORRHOIDS [None]
  - DYSURIA [None]
  - PARAESTHESIA [None]
  - PAIN [None]
  - ANAEMIA [None]
  - HERPES ZOSTER [None]
